FAERS Safety Report 5352454-4 (Version None)
Quarter: 2007Q2

REPORT INFORMATION
  Report Type: 
  Country: None (occurrence: None)
  Receive Date: 20070611
  Receipt Date: 20070607
  Transmission Date: 20071010
  Serious: Yes (Death)
  Sender: FDA-Public Use
  Company Number: A0654711A

PATIENT
  Age: 58 Year
  Sex: Male

DRUGS (5)
  1. AVANDAMET [Suspect]
     Indication: DRUG USE FOR UNKNOWN INDICATION
     Dosage: 2000MG TWICE PER DAY
     Route: 048
  2. GLUCOSAMINE + CHONDROITIN [Concomitant]
  3. LIPITOR [Concomitant]
  4. SAW PALMETTO [Concomitant]
  5. VITAMIN B COMPLEX CAP [Concomitant]

REACTIONS (2)
  - DEATH [None]
  - MYOCARDIAL INFARCTION [None]
